FAERS Safety Report 6737648-5 (Version None)
Quarter: 2010Q2

REPORT INFORMATION
  Report Type: 
  Country: None (occurrence: None)
  Receive Date: 20100521
  Receipt Date: 20100521
  Transmission Date: 20101027
  Serious: Yes (Other)
  Sender: FDA-Public Use
  Company Number: None

PATIENT
  Sex: Female
  Weight: 68.0396 kg

DRUGS (7)
  1. PEGASYS [Suspect]
     Indication: HEPATITIS C
     Dosage: 180MCG ONCE WEEKLY SQ
     Route: 058
     Dates: start: 20100422, end: 20100522
  2. RIBAVIRIN [Suspect]
     Indication: HEPATITIS C
     Dosage: 2 CAPS -400MG- QAM AND QPM PO
     Route: 048
     Dates: start: 20100422, end: 20100522
  3. VALTREX [Concomitant]
  4. NASONEX [Concomitant]
  5. NUVARING [Concomitant]
  6. M.V.I. [Concomitant]
  7. FISH OIL [Concomitant]

REACTIONS (4)
  - ANXIETY [None]
  - CHEST DISCOMFORT [None]
  - CHEST PAIN [None]
  - FEELING HOT [None]
